FAERS Safety Report 20102034 (Version 1)
Quarter: 2021Q4

REPORT INFORMATION
  Report Type: Spontaneous
  Country: CN (occurrence: CN)
  Receive Date: 20211123
  Receipt Date: 20211123
  Transmission Date: 20220303
  Serious: No
  Sender: FDA-Public Use
  Company Number: CN-LUPIN PHARMACEUTICALS INC.-2021-22551

PATIENT
  Age: 49 Year
  Sex: Male

DRUGS (4)
  1. DOXYCYCLINE [Suspect]
     Active Substance: DOXYCYCLINE
     Indication: Q fever
     Dosage: 100 MILLIGRAM, BID
     Route: 048
     Dates: start: 202105
  2. DOXYCYCLINE [Suspect]
     Active Substance: DOXYCYCLINE
     Indication: Brucellosis
  3. RIFAMPIN [Suspect]
     Active Substance: RIFAMPIN
     Indication: Q fever
     Dosage: 600 MILLIGRAM, QD
     Route: 048
     Dates: start: 202105
  4. RIFAMPIN [Suspect]
     Active Substance: RIFAMPIN
     Indication: Brucellosis

REACTIONS (2)
  - Alanine aminotransferase increased [Recovered/Resolved]
  - Aspartate aminotransferase increased [Recovered/Resolved]

NARRATIVE: CASE EVENT DATE: 20210604
